FAERS Safety Report 12869941 (Version 1)
Quarter: 2016Q4

REPORT INFORMATION
  Report Type: Spontaneous
  Country: US (occurrence: US)
  Receive Date: 20161021
  Receipt Date: 20161021
  Transmission Date: 20170207
  Serious: No
  Sender: FDA-Public Use
  Company Number: US-GLAXOSMITHKLINE-US2016152953

PATIENT
  Age: 56 Year
  Sex: Male

DRUGS (1)
  1. FLONASE [Suspect]
     Active Substance: FLUTICASONE PROPIONATE
     Indication: HYPERSENSITIVITY
     Dosage: 2 PUFF(S), UNK

REACTIONS (5)
  - Dysgeusia [Not Recovered/Not Resolved]
  - Dry throat [Recovered/Resolved]
  - Headache [Not Recovered/Not Resolved]
  - Nasal congestion [Recovered/Resolved]
  - Feeling jittery [Recovered/Resolved]
